FAERS Safety Report 17491350 (Version 3)
Quarter: 2020Q2

REPORT INFORMATION
  Report Type: Spontaneous
  Country: US (occurrence: US)
  Receive Date: 20200304
  Receipt Date: 20200417
  Transmission Date: 20200713
  Serious: No
  Sender: FDA-Public Use
  Company Number: US-JNJFOC-20200225113

PATIENT
  Age: 27 Year
  Sex: Male
  Weight: 54.48 kg

DRUGS (1)
  1. MENS ROGAINE EXTRA STRENGTH [Suspect]
     Active Substance: MINOXIDIL
     Indication: ALOPECIA
     Dosage: DOSE:ONE OR TWO SPRAY  AND FREQUENCY: ONCE OR TWICE A DAY.?PRODUCT START DATE:6 MONTHS AGO?THE PRODU
     Route: 061
     Dates: start: 201909, end: 202001

REACTIONS (5)
  - Inappropriate schedule of product administration [Unknown]
  - Product formulation issue [Unknown]
  - Incorrect dose administered [Unknown]
  - Alopecia [Not Recovered/Not Resolved]
  - Product container issue [Unknown]

NARRATIVE: CASE EVENT DATE: 201909
